FAERS Safety Report 7461724-5 (Version None)
Quarter: 2011Q2

REPORT INFORMATION
  Report Type: 
  Country: None (occurrence: None)
  Receive Date: 20110506
  Receipt Date: 20101209
  Transmission Date: 20111010
  Serious: Yes (Hospitalization, Other)
  Sender: FDA-Public Use
  Company Number: US-BAYER-200942890NA

PATIENT
  Age: 35 Year
  Sex: Female
  Weight: 102.4 kg

DRUGS (4)
  1. PREMARIN [Concomitant]
  2. YASMIN [Suspect]
     Indication: CONTRACEPTION
     Dates: start: 20070801, end: 20071116
  3. YASMIN [Suspect]
     Indication: POLYCYSTIC OVARIES
  4. VICODIN [Concomitant]
     Indication: PAIN
     Dosage: UNK UNK, PRN
     Dates: start: 20071114

REACTIONS (6)
  - PULMONARY EMBOLISM [None]
  - DYSPNOEA [None]
  - DIZZINESS [None]
  - CHEST PAIN [None]
  - PAIN IN EXTREMITY [None]
  - DEEP VEIN THROMBOSIS [None]
